FAERS Safety Report 6372781-1 (Version None)
Quarter: 2009Q3

REPORT INFORMATION
  Report Type: 
  Country: None (occurrence: None)
  Receive Date: 20090924
  Receipt Date: 20081107
  Transmission Date: 20100115
  Serious: No
  Sender: FDA-Public Use
  Company Number: US-ASTRAZENECA-2008UW25054

PATIENT
  Age: 17 Year
  Sex: Female

DRUGS (4)
  1. SEROQUEL [Suspect]
     Route: 048
  2. CONCERTA [Concomitant]
  3. ZOLOFT [Concomitant]
  4. DEPAKOTE [Concomitant]

REACTIONS (1)
  - AMPHETAMINES POSITIVE [None]
